FAERS Safety Report 21073236 (Version 1)
Quarter: 2022Q3

REPORT INFORMATION
  Report Type: Spontaneous
  Country: US (occurrence: US)
  Receive Date: 20220712
  Receipt Date: 20220712
  Transmission Date: 20221027
  Serious: No
  Sender: FDA-Public Use
  Company Number: US-LUNDBECK-DKLU3049383

PATIENT
  Age: 65 Year
  Sex: Female

DRUGS (2)
  1. VYEPTI [Suspect]
     Active Substance: EPTINEZUMAB-JJMR
     Indication: Migraine
     Route: 041
     Dates: start: 20220421
  2. IRON [Concomitant]
     Active Substance: IRON
     Indication: Product used for unknown indication
     Route: 065

REACTIONS (6)
  - Back injury [Unknown]
  - Nerve compression [Unknown]
  - Ligament sprain [Unknown]
  - Sciatica [Unknown]
  - Feeling abnormal [Unknown]
  - Tension headache [Unknown]

NARRATIVE: CASE EVENT DATE: 20220515
